FAERS Safety Report 6993451-2 (Version None)
Quarter: 2010Q3

REPORT INFORMATION
  Report Type: 
  Country: None (occurrence: None)
  Receive Date: 20100917
  Receipt Date: 20100427
  Transmission Date: 20110219
  Serious: No
  Sender: FDA-Public Use
  Company Number: US-ASTRAZENECA-2010SE19218

PATIENT
  Age: 45 Year
  Sex: Male

DRUGS (1)
  1. SEROQUEL XR [Suspect]
     Indication: PSYCHOTIC DISORDER
     Route: 048
     Dates: start: 20100201, end: 20100301

REACTIONS (3)
  - DRUG DOSE OMISSION [None]
  - HALLUCINATION [None]
  - HALLUCINATION, AUDITORY [None]
